FAERS Safety Report 8496765-2 (Version None)
Quarter: 2012Q3

REPORT INFORMATION
  Report Type: 
  Country: None (occurrence: None)
  Receive Date: 20120709
  Receipt Date: 20120627
  Transmission Date: 20120928
  Serious: Yes (Hospitalization)
  Sender: FDA-Public Use
  Company Number: CN-ROCHE-1084809

PATIENT
  Age: 23 Year
  Sex: Female

DRUGS (5)
  1. METHYLPREDNISOLONE [Concomitant]
     Dates: start: 20120629
  2. METHYLPREDNISOLONE [Concomitant]
     Dates: start: 20120616
  3. MABTHERA [Suspect]
     Indication: AUTOIMMUNE PANCYTOPENIA
     Dates: start: 20120614
  4. POLYGAM S/D [Concomitant]
     Indication: AUTOIMMUNE PANCYTOPENIA
     Dates: start: 20120616
  5. METHYLPREDNISOLONE [Concomitant]
     Indication: AUTOIMMUNE PANCYTOPENIA

REACTIONS (1)
  - POSTERIOR REVERSIBLE ENCEPHALOPATHY SYNDROME [None]
